FAERS Safety Report 5444913-0 (Version None)
Quarter: 2007Q3

REPORT INFORMATION
  Report Type: 
  Country: None (occurrence: None)
  Receive Date: 20070904
  Receipt Date: 20070904
  Transmission Date: 20080115
  Serious: Yes (Other)
  Sender: FDA-Public Use
  Company Number: None

PATIENT
  Age: 76 Year
  Sex: Female

DRUGS (18)
  1. QUETIAPINE FUMARATE [Suspect]
     Indication: DEPRESSION
     Dosage: 50 MG  BID  PO  (DURATION: LONG TERM -UNKNOWN- )
     Route: 048
  2. TRAZODONE HCL [Concomitant]
  3. CYMBALTA [Concomitant]
  4. AMBIEN [Concomitant]
  5. DETROL LA [Concomitant]
  6. MUCINEX [Concomitant]
  7. MORPHINE SULFATE [Concomitant]
  8. ASPIRIN [Concomitant]
  9. AZATHIOPRINE [Concomitant]
  10. FOSAMAX [Concomitant]
  11. LISINOPRIL [Concomitant]
  12. OMEGA-3 [Concomitant]
  13. PREDNISONE [Concomitant]
  14. RESTATIS [Concomitant]
  15. SYNTHROID [Concomitant]
  16. PROTONIX [Concomitant]
  17. HYDROXYCHLOROQUINE SULFATE [Concomitant]
  18. DUONEBS [Concomitant]

REACTIONS (2)
  - DYSTONIA [None]
  - PNEUMONIA [None]
